FAERS Safety Report 18027161 (Version 1)
Quarter: 2020Q3

REPORT INFORMATION
  Report Type: Spontaneous
  Country: ES (occurrence: ES)
  Receive Date: 20200715
  Receipt Date: 20200715
  Transmission Date: 20201103
  Serious: Yes (Hospitalization)
  Sender: FDA-Public Use
  Company Number: ES-MYLANLABS-2020M1063008

PATIENT
  Age: 66 Year
  Sex: Female

DRUGS (3)
  1. QUETIAPINE. [Suspect]
     Active Substance: QUETIAPINE
     Indication: BIPOLAR DISORDER
     Dosage: FRECUENCIA: 600 MG?MILIGRAMOS || UNIDAD DE FRECUENCIA: 1 D?A
     Route: 048
     Dates: start: 20070809, end: 20070826
  2. CLOPIDOGREL [Concomitant]
     Active Substance: CLOPIDOGREL BISULFATE
     Dosage: 75 MG, QD,  FRECUENCIA: 1 NUMERO DE1 D?A
     Route: 065
  3. VALPROATE SODIUM. [Interacting]
     Active Substance: VALPROATE SODIUM
     Indication: MANIA
     Dosage: FRECUENCIA: 1300 MG?MILIGRAMOS || UNIDAD DE FRECUENCIA: 1 D?A
     Route: 048
     Dates: start: 20070809, end: 20070826

REACTIONS (7)
  - Parkinsonism [Recovered/Resolved]
  - Disorientation [Recovered/Resolved]
  - Depressed level of consciousness [Recovered/Resolved]
  - Drug interaction [Unknown]
  - Hemiparesis [Recovered/Resolved]
  - Memory impairment [Recovered/Resolved]
  - Cognitive disorder [Recovered/Resolved]

NARRATIVE: CASE EVENT DATE: 200708
